FAERS Safety Report 6722654-7 (Version None)
Quarter: 2010Q2

REPORT INFORMATION
  Report Type: 
  Country: None (occurrence: None)
  Receive Date: 20100510
  Receipt Date: 20080109
  Transmission Date: 20101027
  Serious: No
  Sender: FDA-Public Use
  Company Number: 2008-00017

PATIENT
  Sex: Male

DRUGS (1)
  1. ZICAM COLD REMEDY NASAL GEL [Suspect]
     Dosage: QID X 4 DAYS
     Dates: start: 20080104, end: 20080108

REACTIONS (2)
  - AGEUSIA [None]
  - ANOSMIA [None]
